FAERS Safety Report 4900623-7 (Version None)
Quarter: 2006Q1

REPORT INFORMATION
  Report Type: 
  Country: None (occurrence: None)
  Receive Date: 20060203
  Receipt Date: 20060125
  Transmission Date: 20060701
  Serious: Yes (Hospitalization)
  Sender: FDA-Public Use
  Company Number: FR-BRISTOL-MYERS SQUIBB COMPANY-13259627

PATIENT
  Age: 86 Year
  Sex: Male

DRUGS (3)
  1. APROVEL TABS 150 MG [Suspect]
     Route: 048
     Dates: end: 20060107
  2. PLAVIX [Suspect]
     Route: 048
     Dates: start: 20041130, end: 20060106
  3. EQUANIL [Concomitant]
     Route: 048
     Dates: start: 20051116

REACTIONS (9)
  - ABDOMINAL PAIN [None]
  - ALANINE AMINOTRANSFERASE INCREASED [None]
  - ASPARTATE AMINOTRANSFERASE INCREASED [None]
  - BILIRUBIN CONJUGATED INCREASED [None]
  - BLOOD ALKALINE PHOSPHATASE INCREASED [None]
  - BLOOD BILIRUBIN INCREASED [None]
  - FAECES DISCOLOURED [None]
  - HEPATIC FUNCTION ABNORMAL [None]
  - VOMITING [None]
